FAERS Safety Report 6744208-9 (Version None)
Quarter: 2010Q2

REPORT INFORMATION
  Report Type: 
  Country: None (occurrence: None)
  Receive Date: 20100527
  Receipt Date: 20100517
  Transmission Date: 20101027
  Serious: Yes (Congenital Anomaly)
  Sender: FDA-Public Use
  Company Number: GXKR2010DK03523

PATIENT
  Sex: Female

DRUGS (1)
  1. AZITHROMYCIN (NGX) [Suspect]
     Indication: CHLAMYDIAL INFECTION
     Route: 048
     Dates: start: 20100224, end: 20100224

REACTIONS (2)
  - ABORTION SPONTANEOUS [None]
  - DRUG EXPOSURE DURING PREGNANCY [None]
